FAERS Safety Report 14697748 (Version 3)
Quarter: 2019Q1

REPORT INFORMATION
  Report Type: Spontaneous
  Country: US (occurrence: US)
  Receive Date: 20180330
  Receipt Date: 20190115
  Transmission Date: 20190417
  Serious: Yes (Other)
  Sender: FDA-Public Use
  Company Number: US-SA-2018SA004929

PATIENT
  Age: 77 Year
  Sex: Female

DRUGS (1)
  1. ALLEGRA ALLERGY [Suspect]
     Active Substance: FEXOFENADINE HYDROCHLORIDE
     Indication: SEASONAL ALLERGY
     Dosage: 180 MG,QD
     Route: 048
     Dates: start: 20171231

REACTIONS (9)
  - Dry eye [Unknown]
  - Sinusitis [Unknown]
  - Drug ineffective [Unknown]
  - Macular degeneration [Unknown]
  - Dry mouth [Unknown]
  - Headache [Unknown]
  - Hypersensitivity [Unknown]
  - Back pain [Unknown]
  - Glaucoma [Unknown]
